FAERS Safety Report 5124064-5 (Version None)
Quarter: 2006Q4

REPORT INFORMATION
  Report Type: 
  Country: None (occurrence: None)
  Receive Date: 20061010
  Receipt Date: 20051012
  Transmission Date: 20070319
  Serious: No
  Sender: FDA-Public Use
  Company Number: US-BRISTOL-MYERS SQUIBB COMPANY-13142161

PATIENT
  Age: 84 Year
  Sex: Female

DRUGS (2)
  1. AVAPRO [Suspect]
     Indication: HYPERTENSION
  2. AVALIDE [Suspect]
     Indication: HYPERTENSION

REACTIONS (2)
  - DRUG INEFFECTIVE [None]
  - OEDEMA PERIPHERAL [None]
